FAERS Safety Report 25895378 (Version 1)
Quarter: 2025Q4

REPORT INFORMATION
  Report Type: Spontaneous
  Country: NI (occurrence: NI)
  Receive Date: 20251008
  Receipt Date: 20251008
  Transmission Date: 20260118
  Serious: Yes (Other)
  Sender: RANBAXY
  Company Number: NI-SUN PHARMACEUTICAL INDUSTRIES LTD-2025RR-530235

PATIENT
  Age: 63 Year
  Sex: Female

DRUGS (2)
  1. PEMETREXED [Suspect]
     Active Substance: PEMETREXED
     Indication: Chemotherapy
     Dosage: UNK
     Route: 065
  2. CARBOPLATIN [Suspect]
     Active Substance: CARBOPLATIN
     Indication: Chemotherapy
     Dosage: UNK
     Route: 065

REACTIONS (6)
  - Gastrointestinal toxicity [Unknown]
  - Electrocardiogram QT prolonged [Unknown]
  - Electrocardiogram ST segment elevation [Unknown]
  - Ventricular extrasystoles [Unknown]
  - Cardiac failure acute [Unknown]
  - Blood creatinine increased [Unknown]
